FAERS Safety Report 7494114-X (Version None)
Quarter: 2011Q2

REPORT INFORMATION
  Report Type: 
  Country: None (occurrence: None)
  Receive Date: 20110520
  Receipt Date: 20110510
  Transmission Date: 20111010
  Serious: Yes (Other)
  Sender: FDA-Public Use
  Company Number: US-JNJFOC-20110100385

PATIENT
  Sex: Female
  Weight: 79.38 kg

DRUGS (41)
  1. FENTANYL [Suspect]
     Route: 062
     Dates: start: 20020101
  2. FENTANYL [Suspect]
     Route: 062
  3. FENTANYL [Suspect]
     Dosage: 100 UG/HR AND 75 UG/HR
     Route: 062
     Dates: start: 20090101, end: 20100101
  4. FENTANYL CITRATE [Concomitant]
     Indication: BONE NEOPLASM MALIGNANT
     Route: 062
     Dates: start: 20110401, end: 20110501
  5. FENTANYL [Suspect]
     Route: 062
     Dates: end: 20060101
  6. FENTANYL [Suspect]
     Route: 062
     Dates: end: 20060101
  7. FENTANYL [Suspect]
     Dosage: 100 UG/HR AND 75 UG/HR
     Route: 062
     Dates: start: 20090101, end: 20100101
  8. FENTANYL [Suspect]
     Dosage: NDC#50458-094-05
     Route: 062
     Dates: start: 20100101, end: 20110401
  9. FENTANYL [Suspect]
     Dosage: 100 UG/HR AND 75 UG/HR
     Route: 062
     Dates: start: 20090101, end: 20100101
  10. FENTANYL [Suspect]
     Indication: FIBROMYALGIA
     Route: 062
     Dates: start: 20020101
  11. FENTANYL [Suspect]
     Route: 062
     Dates: start: 20060101, end: 20090101
  12. FENTANYL [Suspect]
     Route: 062
     Dates: start: 20060101, end: 20090101
  13. FENTANYL [Suspect]
     Dosage: NDC#50458-094-05
     Route: 062
     Dates: start: 20100101, end: 20110401
  14. FENTANYL [Suspect]
     Route: 062
     Dates: start: 20110501
  15. SKELAXIN [Concomitant]
     Indication: PAIN
     Route: 048
     Dates: start: 20060101
  16. FENTANYL [Suspect]
     Route: 062
     Dates: start: 20020101
  17. FENTANYL [Suspect]
     Indication: OSTEOMYELITIS
     Route: 062
     Dates: end: 20060101
  18. FENTANYL [Suspect]
     Route: 062
     Dates: start: 20020101
  19. FENTANYL [Suspect]
     Dosage: NDC#50458-094-05
     Route: 062
     Dates: start: 20100101, end: 20110401
  20. FENTANYL [Suspect]
     Route: 062
     Dates: start: 20110501
  21. AVINZA [Concomitant]
     Indication: PAIN
     Route: 048
     Dates: start: 20020101
  22. FENTANYL CITRATE [Concomitant]
     Indication: OSTEOMYELITIS
     Route: 062
     Dates: start: 20110401, end: 20110501
  23. FENTANYL [Suspect]
     Route: 062
     Dates: start: 20060101, end: 20090101
  24. FENTANYL [Suspect]
     Route: 062
  25. FENTANYL [Suspect]
     Route: 062
     Dates: start: 20060101, end: 20090101
  26. FENTANYL [Suspect]
     Route: 062
     Dates: start: 20110501
  27. FENTANYL [Suspect]
     Dosage: NDC#50458-094-05
     Route: 062
     Dates: start: 20100101, end: 20110401
  28. FENTANYL [Suspect]
     Dosage: 100 UG/HR AND 75 UG/HR
     Route: 062
     Dates: start: 20090101, end: 20100101
  29. FENTANYL CITRATE [Concomitant]
     Indication: BACK DISORDER
     Route: 062
     Dates: start: 20110401, end: 20110501
  30. FENTANYL [Suspect]
     Indication: BACK DISORDER
     Route: 062
  31. FENTANYL [Suspect]
     Indication: BONE NEOPLASM MALIGNANT
     Route: 062
  32. FENTANYL [Suspect]
     Route: 062
     Dates: start: 20060101, end: 20090101
  33. FENTANYL [Suspect]
     Route: 062
     Dates: end: 20060101
  34. FENTANYL [Suspect]
     Route: 062
  35. FENTANYL [Suspect]
     Dosage: NDC#50458-094-05
     Route: 062
     Dates: start: 20100101, end: 20110401
  36. FENTANYL [Suspect]
     Route: 062
     Dates: start: 20020101
  37. FENTANYL [Suspect]
     Indication: PAIN
     Route: 062
     Dates: end: 20060101
  38. FENTANYL [Suspect]
     Dosage: 100 UG/HR AND 75 UG/HR
     Route: 062
     Dates: start: 20090101, end: 20100101
  39. FENTANYL [Suspect]
     Route: 062
     Dates: start: 20110501
  40. FENTANYL [Suspect]
     Route: 062
     Dates: start: 20110501
  41. FENTANYL CITRATE [Concomitant]
     Indication: FIBROMYALGIA
     Route: 062
     Dates: start: 20110401, end: 20110501

REACTIONS (15)
  - SLEEP APNOEA SYNDROME [None]
  - APPLICATION SITE RASH [None]
  - SINUS DISORDER [None]
  - NERVOUSNESS [None]
  - BREAKTHROUGH PAIN [None]
  - MALAISE [None]
  - INSOMNIA [None]
  - VOMITING [None]
  - FORMICATION [None]
  - THYROID DISORDER [None]
  - GASTRIC DISORDER [None]
  - GASTROINTESTINAL DISORDER [None]
  - ANXIETY [None]
  - MUSCLE SPASMS [None]
  - PRODUCT ADHESION ISSUE [None]
